FAERS Safety Report 5259892-9 (Version None)
Quarter: 2007Q1

REPORT INFORMATION
  Report Type: 
  Country: None (occurrence: None)
  Receive Date: 20070307
  Receipt Date: 20070223
  Transmission Date: 20070707
  Serious: Yes (Death)
  Sender: FDA-Public Use
  Company Number: 200702IM00096

PATIENT
  Age: 63 Year
  Sex: Male
  Weight: 63.5036 kg

DRUGS (7)
  1. ACTIMMUNE [Suspect]
     Indication: INTERSTITIAL LUNG DISEASE
     Dosage: 200 UG, TIW, SUBCUTANEOUS
     Route: 058
     Dates: start: 20061108, end: 20070209
  2. DIGOXIN [Concomitant]
  3. METOPROLOL SUCCINATE [Concomitant]
  4. LOTENSIN [Concomitant]
  5. COUMADIN [Concomitant]
  6. GLIPIZIDE [Concomitant]
  7. VERAPAMIL [Concomitant]

REACTIONS (8)
  - ATRIAL FIBRILLATION [None]
  - BRAIN NATRIURETIC PEPTIDE INCREASED [None]
  - HYPOTENSION [None]
  - LUNG INFILTRATION [None]
  - NO THERAPEUTIC RESPONSE [None]
  - PULMONARY HYPERTENSION [None]
  - RESPIRATORY FAILURE [None]
  - WEIGHT FLUCTUATION [None]
